FAERS Safety Report 7711175-0 (Version None)
Quarter: 2011Q3

REPORT INFORMATION
  Report Type: 
  Country: None (occurrence: None)
  Receive Date: 20110826
  Receipt Date: 20110817
  Transmission Date: 20111222
  Serious: No
  Sender: FDA-Public Use
  Company Number: US-BIOGENIDEC-2011BI031726

PATIENT
  Age: 66 Year
  Sex: Female

DRUGS (6)
  1. CENTRUM [Concomitant]
  2. TYSABRI [Suspect]
     Route: 042
     Dates: start: 20070316, end: 20080417
  3. TYSABRI [Suspect]
     Indication: MULTIPLE SCLEROSIS
     Route: 042
     Dates: start: 20090507
  4. TYSABRI [Suspect]
     Route: 042
     Dates: start: 20081024, end: 20081231
  5. ANTIOXIDANTS [Concomitant]
  6. VITAMIN D [Concomitant]

REACTIONS (2)
  - GAIT DISTURBANCE [None]
  - HEMIPARESIS [None]
